FAERS Safety Report 14580496 (Version 1)
Quarter: 2018Q1

REPORT INFORMATION
  Report Type: Spontaneous
  Country: US (occurrence: US)
  Receive Date: 20180228
  Receipt Date: 20180228
  Transmission Date: 20180509
  Serious: Yes (Death)
  Sender: FDA-Public Use
  Company Number: US-INSYS THERAPEUTICS, INC-INS201705-000338

PATIENT
  Sex: Male

DRUGS (3)
  1. SUBSYS [Suspect]
     Active Substance: FENTANYL
     Indication: PAIN
     Route: 060
     Dates: start: 201506, end: 201507
  2. SUBSYS [Suspect]
     Active Substance: FENTANYL
     Route: 060
  3. SUBSYS [Suspect]
     Active Substance: FENTANYL
     Route: 060

REACTIONS (3)
  - Drug effect incomplete [Unknown]
  - Drug abuse [Unknown]
  - Dizziness [Unknown]
